FAERS Safety Report 16301293 (Version 1)
Quarter: 2019Q2

REPORT INFORMATION
  Report Type: Spontaneous
  Country: US (occurrence: US)
  Receive Date: 20190510
  Receipt Date: 20190510
  Transmission Date: 20190711
  Serious: No
  Sender: FDA-Public Use
  Company Number: US-ACTELION-A-US2018-183204

PATIENT
  Age: 52 Year
  Sex: Female

DRUGS (3)
  1. TRACLEER [Suspect]
     Active Substance: BOSENTAN
     Indication: PULMONARY ARTERIAL HYPERTENSION
     Dosage: 125 MG, BID
     Route: 048
     Dates: start: 20190211
  2. TRACLEER [Suspect]
     Active Substance: BOSENTAN
     Dosage: UNK
     Route: 048
  3. NATURE-THROID [Concomitant]
     Active Substance: THYROID, PORCINE

REACTIONS (5)
  - Nasopharyngitis [Unknown]
  - Product dose omission [Unknown]
  - Pneumonia [Unknown]
  - Bronchitis [Unknown]
  - Memory impairment [Unknown]

NARRATIVE: CASE EVENT DATE: 20190405
